FAERS Safety Report 22241274 (Version 1)
Quarter: 2023Q2

REPORT INFORMATION
  Report Type: Spontaneous
  Country: US (occurrence: US)
  Receive Date: 20230421
  Receipt Date: 20230421
  Transmission Date: 20230722
  Serious: No
  Sender: FDA-Public Use
  Company Number: US-002147023-NVSC2023US088740

PATIENT
  Age: 40 Year
  Sex: Male
  Weight: 176 kg

DRUGS (2)
  1. OXCARBAZEPINE [Suspect]
     Active Substance: OXCARBAZEPINE
     Indication: Product used for unknown indication
     Dosage: 900 MG, QD, (450 IN AM, 450 IN PM)
     Route: 065
  2. DOTAREM [Concomitant]
     Active Substance: GADOTERATE MEGLUMINE
     Indication: Product used for unknown indication
     Dosage: 17 ML
     Route: 042

REACTIONS (5)
  - Breakthrough pain [Unknown]
  - Pain [Unknown]
  - Facial asymmetry [Unknown]
  - Vascular compression [Unknown]
  - Nervous system disorder [Unknown]
